FAERS Safety Report 5299884-7 (Version None)
Quarter: 2007Q2

REPORT INFORMATION
  Report Type: 
  Country: None (occurrence: None)
  Receive Date: 20070410
  Receipt Date: 20070326
  Transmission Date: 20071010
  Serious: Yes (Death, Hospitalization, Other)
  Sender: FDA-Public Use
  Company Number: L07-IND-01329-01

PATIENT
  Age: 6 Week
  Sex: Male

DRUGS (2)
  1. CARBAMAZEPINE [Suspect]
     Dosage: 900 MG QD TRANSPLACENTAL
     Route: 064
  2. CARBAMAZEPINE [Suspect]
     Dosage: 1200 MG QD TRANSPLACENTAL
     Route: 064

REACTIONS (22)
  - ARTERIOVENOUS MALFORMATION [None]
  - BRAIN COMPRESSION [None]
  - CEREBRAL HAEMATOMA [None]
  - CLONUS [None]
  - CONVULSION NEONATAL [None]
  - CSF PROTEIN INCREASED [None]
  - CSF TEST ABNORMAL [None]
  - DRUG EXPOSURE DURING PREGNANCY [None]
  - DRUG EXPOSURE VIA BREAST MILK [None]
  - FOETAL ANTICONVULSANT SYNDROME [None]
  - FONTANELLE DEPRESSED [None]
  - HAEMORRHAGE INTRACRANIAL [None]
  - HYDROCEPHALUS [None]
  - HYPERREFLEXIA [None]
  - HYPERTELORISM OF ORBIT [None]
  - HYPOTONIA NEONATAL [None]
  - INFANTILE APNOEIC ATTACK [None]
  - MICROGNATHIA [None]
  - NEONATAL TETANY [None]
  - PARTIAL SEIZURES [None]
  - PYREXIA [None]
  - RED BLOOD CELLS CSF POSITIVE [None]
